FAERS Safety Report 4339245-8 (Version None)
Quarter: 2004Q2

REPORT INFORMATION
  Report Type: 
  Country: None (occurrence: None)
  Receive Date: 20040412
  Receipt Date: 20040406
  Transmission Date: 20050107
  Serious: Yes (Other)
  Sender: FDA-Public Use
  Company Number: US-JNJFOC-20030904543

PATIENT
  Age: 33 Year
  Sex: Female

DRUGS (1)
  1. SPORANOX [Suspect]
     Dosage: 100 MG, 2 IN 1 DAY, ORAL
     Route: 048

REACTIONS (1)
  - EOSINOPHILIA [None]
